FAERS Safety Report 8561372-X (Version None)
Quarter: 2012Q3

REPORT INFORMATION
  Report Type: 
  Country: None (occurrence: None)
  Receive Date: 20120802
  Receipt Date: 20120718
  Transmission Date: 20120928
  Serious: Yes (Other)
  Sender: FDA-Public Use
  Company Number: US-COVIDIEN/TYCO HEALTHCARE/MALLINCKRODT-T201202945

PATIENT
  Age: 40 Year
  Sex: Female

DRUGS (2)
  1. OXYCODONE/ACETAMINOPHEN [Suspect]
     Dosage: UNK
     Route: 045
  2. ACETAMINOPHEN [Suspect]
     Dosage: UNK
     Route: 045

REACTIONS (4)
  - NASOPHARYNGITIS [None]
  - DRUG ABUSE [None]
  - NASAL NECROSIS [None]
  - WRONG TECHNIQUE IN DRUG USAGE PROCESS [None]
